FAERS Safety Report 5322869-9 (Version None)
Quarter: 2007Q2

REPORT INFORMATION
  Report Type: 
  Country: None (occurrence: None)
  Receive Date: 20070511
  Receipt Date: 20070501
  Transmission Date: 20071010
  Serious: Yes (Hospitalization, Other)
  Sender: FDA-Public Use
  Company Number: US-PFIZER INC-2007036229

PATIENT
  Sex: Female
  Weight: 59.09 kg

DRUGS (8)
  1. CHANTIX [Suspect]
     Indication: SMOKING CESSATION THERAPY
     Dates: start: 20070301, end: 20070301
  2. ACTOS [Concomitant]
  3. LOPRESSOR [Concomitant]
  4. LANOXIN [Concomitant]
  5. LESCOL [Concomitant]
  6. LASIX [Concomitant]
  7. POTASSIUM ACETATE [Concomitant]
  8. ALTACE [Concomitant]

REACTIONS (4)
  - GENERALISED OEDEMA [None]
  - MALAISE [None]
  - OEDEMA PERIPHERAL [None]
  - WEIGHT INCREASED [None]
